FAERS Safety Report 5380024-0 (Version None)
Quarter: 2007Q3

REPORT INFORMATION
  Report Type: 
  Country: None (occurrence: None)
  Receive Date: 20070703
  Receipt Date: 20070619
  Transmission Date: 20080115
  Serious: Yes (Hospitalization)
  Sender: FDA-Public Use
  Company Number: 2007MP000083

PATIENT
  Age: 36 Year
  Sex: Male
  Weight: 108 kg

DRUGS (4)
  1. GLIADEL [Suspect]
     Indication: GLIOSARCOMA
     Dosage: 61.6 MG;X1; ICER
     Dates: start: 20070119, end: 20070615
  2. DEXAMETHASONE (CON.) [Concomitant]
  3. PHENYTOIN (CON.) [Concomitant]
  4. OMEPRAZOLE (CON.) [Concomitant]

REACTIONS (9)
  - BRAIN NEOPLASM MALIGNANT [None]
  - BRAIN OEDEMA [None]
  - GLIOSARCOMA [None]
  - HEADACHE [None]
  - HEMIPARESIS [None]
  - INFLAMMATION [None]
  - INTRACRANIAL PRESSURE INCREASED [None]
  - MALIGNANT NEOPLASM PROGRESSION [None]
  - SOMNOLENCE [None]
